FAERS Safety Report 8367350-8 (Version None)
Quarter: 2012Q2

REPORT INFORMATION
  Report Type: 
  Country: None (occurrence: None)
  Receive Date: 20120517
  Receipt Date: 20120516
  Transmission Date: 20120825
  Serious: Yes (Hospitalization)
  Sender: FDA-Public Use
  Company Number: US-BAYER-201023105NA

PATIENT
  Age: 34 Year
  Sex: Female
  Weight: 68.182 kg

DRUGS (14)
  1. BACLOFEN [Concomitant]
     Indication: HYPOTONIA
     Dosage: 10 MG, UNK
  2. PROPIVERINE HYDROCHLORIDE [Concomitant]
     Indication: URINARY TRACT INFECTION
     Dosage: 100 MG, UNK
  3. ASPIRIN [Concomitant]
  4. CALCIUM VIT D [Concomitant]
  5. CITALOPRAM HYDROBROMIDE [Concomitant]
     Indication: DEPRESSION
     Dosage: 20 MG, UNK
  6. NITROFURAN [Concomitant]
     Indication: URINARY TRACT INFECTION
  7. YASMIN [Suspect]
     Indication: CONTRACEPTION
     Dates: start: 20060103, end: 20070728
  8. ZOCOR [Concomitant]
  9. SIMVASTATIN [Concomitant]
     Dosage: 40 MG, UNK
  10. CELEXA [Concomitant]
  11. IBUPROFEN (ADVIL) [Concomitant]
  12. BACLOFEN [Concomitant]
  13. MOTRIN [Concomitant]
  14. MIDOL IB [Concomitant]

REACTIONS (3)
  - APHASIA [None]
  - HEMIPLEGIA [None]
  - ISCHAEMIC STROKE [None]
